FAERS Safety Report 11345695 (Version 2)
Quarter: 2015Q4

REPORT INFORMATION
  Report Type: Spontaneous
  Country: JP (occurrence: JP)
  Receive Date: 20150806
  Receipt Date: 20151022
  Transmission Date: 20160304
  Serious: Yes (Hospitalization)
  Sender: FDA-Public Use
  Company Number: JP-ELI_LILLY_AND_COMPANY-JP201507010982

PATIENT
  Age: 49 Year
  Sex: Female
  Weight: 58.2 kg

DRUGS (8)
  1. RISPERDAL [Concomitant]
     Active Substance: RISPERIDONE
     Indication: ANXIETY DISORDER
     Dosage: UNK
     Route: 048
     Dates: start: 20141222, end: 201507
  2. DIOVAN [Concomitant]
     Active Substance: VALSARTAN
     Indication: HYPERTENSION
     Dosage: UNK
     Route: 048
     Dates: start: 20130128, end: 201507
  3. CERCINE [Concomitant]
     Active Substance: DIAZEPAM
     Indication: ANXIETY DISORDER
     Dosage: UNK
     Route: 048
     Dates: start: 20091102, end: 201507
  4. CYMBALTA [Suspect]
     Active Substance: DULOXETINE HYDROCHLORIDE
     Dosage: 40 MG, QD
     Route: 048
     Dates: start: 20150713, end: 201507
  5. GASTER [Concomitant]
     Active Substance: FAMOTIDINE
     Indication: ANXIETY DISORDER
     Dosage: UNK
     Route: 048
     Dates: start: 20100215, end: 201507
  6. LUNESTA [Concomitant]
     Active Substance: ESZOPICLONE
     Indication: ANXIETY DISORDER
     Dosage: UNK
     Route: 048
     Dates: start: 20130701, end: 201507
  7. CYMBALTA [Suspect]
     Active Substance: DULOXETINE HYDROCHLORIDE
     Indication: PAIN
     Dosage: 20 MG, QD
     Route: 048
     Dates: start: 20150615, end: 20150712
  8. DAISAIKOTO /07976201/ [Suspect]
     Active Substance: HERBALS
     Indication: PRODUCT USED FOR UNKNOWN INDICATION
     Dosage: UNK
     Route: 048
     Dates: start: 20150616, end: 201507

REACTIONS (5)
  - Off label use [Recovered/Resolved]
  - Drug-induced liver injury [None]
  - Liver injury [None]
  - Liver disorder [Recovering/Resolving]
  - Cholestasis [None]

NARRATIVE: CASE EVENT DATE: 20150615
